FAERS Safety Report 7762079-9 (Version None)
Quarter: 2011Q3

REPORT INFORMATION
  Report Type: 
  Country: None (occurrence: None)
  Receive Date: 20110920
  Receipt Date: 20110920
  Transmission Date: 20111222
  Serious: No
  Sender: FDA-Public Use
  Company Number: None

PATIENT
  Sex: Male
  Weight: 63.956 kg

DRUGS (1)
  1. BIAXIN [Suspect]
     Indication: BRONCHITIS
     Dosage: ONE
     Route: 048
     Dates: start: 20110913, end: 20110919

REACTIONS (7)
  - CONFUSIONAL STATE [None]
  - HEADACHE [None]
  - DECREASED APPETITE [None]
  - INSOMNIA [None]
  - DEPRESSION [None]
  - DRY MOUTH [None]
  - NAUSEA [None]
